FAERS Safety Report 17570364 (Version 4)
Quarter: 2023Q4

REPORT INFORMATION
  Report Type: Spontaneous
  Country: US (occurrence: US)
  Receive Date: 20200323
  Receipt Date: 20231030
  Transmission Date: 20240110
  Serious: Yes (Hospitalization, Other)
  Sender: FDA-Public Use
  Company Number: US-GILEAD-2020-0455829

PATIENT
  Age: 46 Year
  Sex: Female
  Weight: 74.83 kg

DRUGS (68)
  1. VIREAD [Suspect]
     Active Substance: TENOFOVIR DISOPROXIL FUMARATE
     Indication: Hepatitis B
     Dosage: UNK
     Route: 048
     Dates: start: 2012
  2. VIREAD [Suspect]
     Active Substance: TENOFOVIR DISOPROXIL FUMARATE
     Dosage: UNK
     Route: 048
     Dates: start: 200909, end: 20171124
  3. VIREAD [Suspect]
     Active Substance: TENOFOVIR DISOPROXIL FUMARATE
     Dosage: UNK
     Route: 048
     Dates: start: 200910, end: 20171124
  4. POTASSIUM CITRATE - CITRIC ACID CRYSTALS [Concomitant]
  5. FLOMAX [Concomitant]
     Active Substance: TAMSULOSIN HYDROCHLORIDE
  6. FORTEO [Concomitant]
     Active Substance: TERIPARATIDE
  7. TYMLOS [Concomitant]
     Active Substance: ABALOPARATIDE
  8. CHOLECALCIFEROL [Concomitant]
     Active Substance: CHOLECALCIFEROL
  9. PROTONIX [Concomitant]
     Active Substance: PANTOPRAZOLE SODIUM
  10. ALENDRONATE SODIUM [Concomitant]
     Active Substance: ALENDRONATE SODIUM
  11. AMOXICILLIN [Concomitant]
     Active Substance: AMOXICILLIN
  12. ATROVENT [Concomitant]
     Active Substance: IPRATROPIUM BROMIDE
  13. IPRATROPIUM BROMIDE [Concomitant]
     Active Substance: IPRATROPIUM BROMIDE\IPRATROPIUM BROMIDE ANHYDROUS
  14. AZITHROMYCIN [Concomitant]
     Active Substance: AZITHROMYCIN
  15. CEFDINIR [Concomitant]
     Active Substance: CEFDINIR
  16. CEPHALEXIN [Concomitant]
     Active Substance: CEPHALEXIN
  17. CHLORASEPTIC SORE THROAT [Concomitant]
     Active Substance: PHENOL
  18. CIPROFLOXACIN [Concomitant]
     Active Substance: CIPROFLOXACIN
  19. CLINDAMYCIN [Concomitant]
     Active Substance: CLINDAMYCIN
  20. DIAZEPAM [Concomitant]
     Active Substance: DIAZEPAM
  21. ALUMINUM HYDROXIDE\DICYCLOMINE HYDROCHLORIDE\MAGNESIUM OXIDE [Concomitant]
     Active Substance: ALUMINUM HYDROXIDE\DICYCLOMINE HYDROCHLORIDE\MAGNESIUM OXIDE
  22. ECOTRIN [Concomitant]
     Active Substance: ASPIRIN
  23. ENDOCET [Concomitant]
     Active Substance: ACETAMINOPHEN\OXYCODONE HYDROCHLORIDE
  24. ACETAMINOPHEN [Concomitant]
     Active Substance: ACETAMINOPHEN
  25. ENOXAPARIN [Concomitant]
     Active Substance: ENOXAPARIN
  26. ENTECAVIR [Concomitant]
     Active Substance: ENTECAVIR
  27. FLEXERIL [Concomitant]
     Active Substance: CYCLOBENZAPRINE HYDROCHLORIDE
  28. FLUTICASONE [Concomitant]
     Active Substance: FLUTICASONE
  29. GABAPENTIN [Concomitant]
     Active Substance: GABAPENTIN
  30. HEPSERA [Concomitant]
     Active Substance: ADEFOVIR DIPIVOXIL
  31. HYDROCODONE [Concomitant]
     Active Substance: HYDROCODONE
  32. HYOSCYAMINE SULFATE [Concomitant]
     Active Substance: HYOSCYAMINE SULFATE
  33. IBUPROFEN [Concomitant]
     Active Substance: IBUPROFEN
  34. KLOR-CON [Concomitant]
     Active Substance: POTASSIUM CHLORIDE
  35. K PHOS NEUTRAL [Concomitant]
     Active Substance: POTASSIUM PHOSPHATE, MONOBASIC\SODIUM PHOSPHATE, DIBASIC, ANHYDROUS\SODIUM PHOSPHATE, MONOBASIC, MON
  36. LACTULOSE [Concomitant]
     Active Substance: LACTULOSE
  37. LIDOCAINE [Concomitant]
     Active Substance: LIDOCAINE
  38. ENOXAPARIN SODIUM [Concomitant]
     Active Substance: ENOXAPARIN SODIUM
  39. CLARITHROMYCIN [Concomitant]
     Active Substance: CLARITHROMYCIN
  40. MELATONIN [Concomitant]
     Active Substance: MELATONIN
  41. METHOCARBAMOL [Concomitant]
     Active Substance: METHOCARBAMOL
  42. MINERALS\VITAMINS [Concomitant]
     Active Substance: MINERALS\VITAMINS
  43. NICOTINE [Concomitant]
     Active Substance: NICOTINE
  44. NITROFURANTOIN MONOHYDRATE MACROCRYSTALS [Concomitant]
     Active Substance: NITROFURANTOIN\NITROFURANTOIN MONOHYDRATE
  45. TOPROL XL [Concomitant]
     Active Substance: METOPROLOL SUCCINATE
  46. METOPROLOL [Concomitant]
     Active Substance: METOPROLOL
  47. PROTONIX [Concomitant]
     Active Substance: PANTOPRAZOLE SODIUM
  48. PAXIL [Concomitant]
     Active Substance: PAROXETINE HYDROCHLORIDE
  49. POLYETHYLENE GLYCOL 3350 [Concomitant]
     Active Substance: POLYETHYLENE GLYCOL 3350
  50. PREMARIN [Concomitant]
     Active Substance: ESTROGENS, CONJUGATED
  51. PROMETHAZINE [Concomitant]
     Active Substance: PROMETHAZINE HYDROCHLORIDE
  52. PROTONIX [Concomitant]
     Active Substance: PANTOPRAZOLE SODIUM
  53. SENOKOT [Concomitant]
     Active Substance: SENNOSIDES
  54. TIZANIDINE [Concomitant]
     Active Substance: TIZANIDINE
  55. TORADOL [Concomitant]
     Active Substance: KETOROLAC TROMETHAMINE
  56. TRAMADOL [Concomitant]
     Active Substance: TRAMADOL\TRAMADOL HYDROCHLORIDE
  57. VITAMIN D NOS [Concomitant]
     Active Substance: VITAMIN D NOS
  58. XIFAXAN [Concomitant]
     Active Substance: RIFAXIMIN
  59. ZANTAC [Concomitant]
     Active Substance: RANITIDINE HYDROCHLORIDE
  60. ZOFRAN [Concomitant]
     Active Substance: ONDANSETRON HYDROCHLORIDE
  61. ZOLPIDEM [Concomitant]
     Active Substance: ZOLPIDEM TARTRATE
  62. PROTONIX [Concomitant]
     Active Substance: PANTOPRAZOLE SODIUM
  63. ASPIRIN [Concomitant]
     Active Substance: ASPIRIN
  64. VITAMIN D2 [Concomitant]
     Active Substance: ERGOCALCIFEROL
  65. VITAMIN D3 [Concomitant]
     Active Substance: CHOLECALCIFEROL
  66. ROPINIROLE [Concomitant]
     Active Substance: ROPINIROLE
  67. RIFAXIMIN [Concomitant]
     Active Substance: RIFAXIMIN
  68. UROCIT-K [Concomitant]
     Active Substance: POTASSIUM CITRATE

REACTIONS (22)
  - Upper limb fracture [Not Recovered/Not Resolved]
  - Hip fracture [Not Recovered/Not Resolved]
  - Femur fracture [Not Recovered/Not Resolved]
  - Osteoporosis [Not Recovered/Not Resolved]
  - Pelvic fracture [Unknown]
  - Renal impairment [Not Recovered/Not Resolved]
  - Chronic kidney disease [Not Recovered/Not Resolved]
  - Nephrolithiasis [Unknown]
  - Ulcer haemorrhage [Unknown]
  - Fanconi syndrome acquired [Recovered/Resolved]
  - Nephrogenic anaemia [Not Recovered/Not Resolved]
  - Bone density decreased [Unknown]
  - Emotional distress [Not Recovered/Not Resolved]
  - Anhedonia [Not Recovered/Not Resolved]
  - Economic problem [Not Recovered/Not Resolved]
  - Life expectancy shortened [Not Recovered/Not Resolved]
  - Mobility decreased [Not Recovered/Not Resolved]
  - Decreased activity [Not Recovered/Not Resolved]
  - Weight decreased [Unknown]
  - Anxiety [Not Recovered/Not Resolved]
  - Depression [Not Recovered/Not Resolved]
  - Pain [Not Recovered/Not Resolved]

NARRATIVE: CASE EVENT DATE: 20161005
